FAERS Safety Report 18038109 (Version 1)
Quarter: 2020Q3

REPORT INFORMATION
  Report Type: Spontaneous
  Country: RS (occurrence: RS)
  Receive Date: 20200717
  Receipt Date: 20200717
  Transmission Date: 20201103
  Serious: Yes (Hospitalization)
  Sender: FDA-Public Use
  Company Number: RS-FERRINGPH-2020FE04559

PATIENT
  Age: 2 Year
  Sex: Female

DRUGS (1)
  1. DDAVP [Suspect]
     Active Substance: DESMOPRESSIN ACETATE
     Indication: DIABETES INSIPIDUS
     Dosage: 5?10 UG DAILY
     Route: 045

REACTIONS (3)
  - Somnolence [Unknown]
  - Water intoxication [Unknown]
  - Hyponatraemia [Unknown]
